FAERS Safety Report 5024291-1 (Version None)
Quarter: 2006Q2

REPORT INFORMATION
  Report Type: 
  Country: None (occurrence: None)
  Receive Date: 20060613
  Receipt Date: 20060601
  Transmission Date: 20061013
  Serious: Yes (Other)
  Sender: FDA-Public Use
  Company Number: BE-AMGEN-UK181644

PATIENT
  Sex: Female
  Weight: 50 kg

DRUGS (1)
  1. PALIFERMIN [Suspect]
     Indication: MUCOSAL INFLAMMATION
     Route: 065

REACTIONS (10)
  - DERMATITIS EXFOLIATIVE [None]
  - FACE OEDEMA [None]
  - FLUID RETENTION [None]
  - NAUSEA [None]
  - OEDEMA MUCOSAL [None]
  - PAIN [None]
  - PRURITUS [None]
  - SODIUM RETENTION [None]
  - TONGUE OEDEMA [None]
  - VOMITING [None]
